FAERS Safety Report 10036730 (Version 1)
Quarter: 2014Q1

REPORT INFORMATION
  Report Type: Spontaneous
  Country: US (occurrence: US)
  Receive Date: 20140326
  Receipt Date: 20140326
  Transmission Date: 20141002
  Serious: No
  Sender: FDA-Public Use
  Company Number: US-BIOGENIDEC-2014BI023447

PATIENT
  Age: 48 Year
  Sex: Female

DRUGS (12)
  1. TECFIDERA [Suspect]
     Indication: PRODUCT USED FOR UNKNOWN INDICATION
     Route: 048
     Dates: start: 20140130, end: 20140211
  2. TECFIDERA [Suspect]
     Indication: PRODUCT USED FOR UNKNOWN INDICATION
     Route: 048
     Dates: start: 20140308
  3. EFFEXOR [Concomitant]
  4. AMANTADINE [Concomitant]
  5. TRAZODONE [Concomitant]
  6. LEVOTHYROXINE [Concomitant]
  7. OGESTREL [Concomitant]
  8. VITAMIN D [Concomitant]
  9. CALCIUM [Concomitant]
  10. FISH OIL [Concomitant]
  11. CO-Q10 [Concomitant]
  12. RED YEAST RICE [Concomitant]
     Indication: MULTIPLE SCLEROSIS

REACTIONS (5)
  - Intentional underdose [Recovered/Resolved]
  - Vomiting [Recovered/Resolved]
  - Diarrhoea [Recovered/Resolved]
  - Abdominal pain upper [Recovered/Resolved]
  - Pruritus [Not Recovered/Not Resolved]
